FAERS Safety Report 18584621 (Version 3)
Quarter: 2021Q1

REPORT INFORMATION
  Report Type: Spontaneous
  Country: JP (occurrence: JP)
  Receive Date: 20201207
  Receipt Date: 20210201
  Transmission Date: 20210419
  Serious: Yes (Death)
  Sender: FDA-Public Use
  Company Number: NVSJ2020JP013090

PATIENT
  Age: 96 Year
  Sex: Male

DRUGS (1)
  1. ENERZAIR [Suspect]
     Active Substance: GLYCOPYRROLATE\INDACATEROL\MOMETASONE FUROATE
     Indication: ASTHMA
     Dosage: 1DF:INDACATEROL ACETATE150UG, GLYCOPYRRONIUM BROMIDE50UG, MOMETASONE FUROATE80UG
     Route: 055
     Dates: start: 20200930, end: 20201116

REACTIONS (1)
  - Cardiac failure [Fatal]

NARRATIVE: CASE EVENT DATE: 20201130
